FAERS Safety Report 5857855-3 (Version None)
Quarter: 2008Q3

REPORT INFORMATION
  Report Type: 
  Country: None (occurrence: None)
  Receive Date: 20080825
  Receipt Date: 20080825
  Transmission Date: 20090109
  Serious: No
  Sender: FDA-Public Use
  Company Number: None

PATIENT
  Sex: Female
  Weight: 70.7611 kg

DRUGS (1)
  1. CREON [Suspect]
     Indication: VITAMIN SUPPLEMENTATION
     Dosage: NON INDICATED 6 CAPSULES/DAY PO, 18 DAYS
     Route: 048
     Dates: start: 20080804, end: 20080822

REACTIONS (9)
  - BURNING SENSATION [None]
  - DERMATITIS [None]
  - LYMPHOEDEMA [None]
  - OEDEMA PERIPHERAL [None]
  - PAIN [None]
  - PRURITUS [None]
  - RASH [None]
  - RASH MACULO-PAPULAR [None]
  - SKIN ULCER [None]
